FAERS Safety Report 5009118-6 (Version None)
Quarter: 2006Q2

REPORT INFORMATION
  Report Type: 
  Country: None (occurrence: None)
  Receive Date: 20060516
  Receipt Date: 20060508
  Transmission Date: 20061013
  Serious: Yes (Hospitalization)
  Sender: FDA-Public Use
  Company Number: 2006-141460-NL

PATIENT
  Age: 31 Year
  Sex: Female

DRUGS (6)
  1. MIRTAZAPINE [Suspect]
     Indication: DEPRESSION
     Dosage: 15 MG
     Route: 048
  2. ESCITALOPRAM OXALATE [Suspect]
     Indication: DEPRESSION
     Dosage: 20 MG
     Dates: start: 20060316
  3. TERBUTALINE SULFATE [Concomitant]
  4. BUDESONIDE [Concomitant]
  5. FLUTICASONE PROPIONATE [Concomitant]
  6. CLEMASTINE [Concomitant]

REACTIONS (5)
  - ABORTION SPONTANEOUS [None]
  - DRUG EXPOSURE DURING PREGNANCY [None]
  - ECTOPIC PREGNANCY [None]
  - HYSTEROSALPINGOGRAM ABNORMAL [None]
  - PREGNANCY [None]
